FAERS Safety Report 5590143-1 (Version None)
Quarter: 2008Q1

REPORT INFORMATION
  Report Type: 
  Country: None (occurrence: None)
  Receive Date: 20080114
  Receipt Date: 20070409
  Transmission Date: 20080703
  Serious: No
  Sender: FDA-Public Use
  Company Number: US-ABBOTT-07P-163-0365153-00

PATIENT
  Sex: Male
  Weight: 22.7 kg

DRUGS (2)
  1. OMNICEF [Suspect]
     Indication: PHARYNGITIS STREPTOCOCCAL
     Route: 048
     Dates: start: 20070324, end: 20070402
  2. OMNICEF [Suspect]

REACTIONS (1)
  - URTICARIA [None]
